FAERS Safety Report 21077851 (Version 24)
Quarter: 2025Q3

REPORT INFORMATION
  Report Type: Report from Study
  Country: CN (occurrence: CN)
  Receive Date: 20220713
  Receipt Date: 20250908
  Transmission Date: 20251021
  Serious: Yes (Other)
  Sender: TAKEDA
  Company Number: CN-TAKEDA-2021TUS043962

PATIENT
  Age: 46 Year
  Sex: Female
  Weight: 52 kg

DRUGS (22)
  1. IXAZOMIB [Suspect]
     Active Substance: IXAZOMIB
     Indication: Plasma cell myeloma
     Dates: start: 20210625, end: 20210703
  2. IXAZOMIB [Suspect]
     Active Substance: IXAZOMIB
     Dates: start: 20211111, end: 20211124
  3. IXAZOMIB [Suspect]
     Active Substance: IXAZOMIB
     Dates: start: 20211211, end: 20211221
  4. IXAZOMIB [Suspect]
     Active Substance: IXAZOMIB
     Dosage: 4 MILLIGRAM, 1/WEEK
     Dates: start: 20220527
  5. DEXAMETHASONE SODIUM PHOSPHATE [Suspect]
     Active Substance: DEXAMETHASONE SODIUM PHOSPHATE
     Indication: Plasma cell myeloma
     Dosage: 20 MILLIGRAM, QD
     Dates: start: 20210625, end: 20210703
  6. DEXAMETHASONE SODIUM PHOSPHATE [Suspect]
     Active Substance: DEXAMETHASONE SODIUM PHOSPHATE
     Dates: start: 20211211, end: 20211221
  7. DEXAMETHASONE SODIUM PHOSPHATE [Suspect]
     Active Substance: DEXAMETHASONE SODIUM PHOSPHATE
     Dates: start: 20220311, end: 20220312
  8. DEXAMETHASONE SODIUM PHOSPHATE [Suspect]
     Active Substance: DEXAMETHASONE SODIUM PHOSPHATE
     Dosage: 5 MILLIGRAM, QOD
     Dates: start: 20220316, end: 20220318
  9. DEXAMETHASONE SODIUM PHOSPHATE [Suspect]
     Active Substance: DEXAMETHASONE SODIUM PHOSPHATE
     Dosage: 5 MILLIGRAM, QD
     Dates: start: 20220323, end: 20220323
  10. DEXAMETHASONE SODIUM PHOSPHATE [Suspect]
     Active Substance: DEXAMETHASONE SODIUM PHOSPHATE
     Dosage: 5 MILLIGRAM, 1/WEEK
     Dates: start: 20220329, end: 20220405
  11. DEXAMETHASONE SODIUM PHOSPHATE [Suspect]
     Active Substance: DEXAMETHASONE SODIUM PHOSPHATE
     Dates: start: 20220528, end: 20220606
  12. OMEPRAZOLE [Concomitant]
     Active Substance: OMEPRAZOLE
     Indication: Prophylaxis
     Dosage: 40 MILLIGRAM, QD
     Dates: start: 20210625, end: 20210703
  13. SODIUM BICARBONATE [Concomitant]
     Active Substance: SODIUM BICARBONATE
     Indication: Alkalosis
     Dosage: 500 MILLILITER, QD
     Dates: start: 20210625, end: 20210703
  14. Bacillus subtilis;Enterococcus faecium [Concomitant]
     Indication: Constipation
     Dosage: 250 MILLIGRAM, TID
     Dates: start: 20210624, end: 20210703
  15. MOXALACTAM DISODIUM [Concomitant]
     Active Substance: MOXALACTAM DISODIUM
     Indication: Upper respiratory tract infection
     Dates: start: 20210626, end: 20210703
  16. GANCICLOVIR [Concomitant]
     Active Substance: GANCICLOVIR
     Indication: Upper respiratory tract infection
     Dates: start: 20210626, end: 20210703
  17. HERBALS\MENTHOL [Concomitant]
     Active Substance: HERBALS\MENTHOL
     Indication: Prophylaxis
     Dosage: 6 GRAM, TID
     Dates: start: 20210626, end: 20210627
  18. HERBALS\MENTHOL [Concomitant]
     Active Substance: HERBALS\MENTHOL
     Dosage: 6 GRAM, TID
     Dates: start: 20210628, end: 20210703
  19. HERBALS\MENTHOL [Concomitant]
     Active Substance: HERBALS\MENTHOL
     Dosage: 10 MILLIGRAM, QD
     Dates: start: 20211211
  20. LACTULOSE [Concomitant]
     Active Substance: LACTULOSE
     Indication: Constipation
  21. LACTULOSE [Concomitant]
     Active Substance: LACTULOSE
  22. METHYLCOBALAMIN [Concomitant]
     Active Substance: METHYLCOBALAMIN
     Indication: Neuropathy peripheral
     Dosage: 500 MICROGRAM, QD
     Dates: start: 20210623, end: 20210703

REACTIONS (27)
  - Cholecystitis [Not Recovered/Not Resolved]
  - Arrhythmia [Recovered/Resolved]
  - Pneumonia [Unknown]
  - Lymphocyte count decreased [Not Recovered/Not Resolved]
  - Skin swelling [Recovering/Resolving]
  - Abdominal discomfort [Recovered/Resolved]
  - Off label use [Recovered/Resolved]
  - White blood cell count decreased [Not Recovered/Not Resolved]
  - Anaemia [Recovered/Resolved]
  - Neutrophil count decreased [Recovered/Resolved]
  - Decreased appetite [Recovering/Resolving]
  - Platelet count decreased [Not Recovered/Not Resolved]
  - Upper respiratory tract infection [Recovered/Resolved]
  - Nasal congestion [Recovered/Resolved]
  - Hypoglycaemia [Not Recovered/Not Resolved]
  - Hypersensitivity [Recovering/Resolving]
  - Gastrointestinal infection [Recovered/Resolved]
  - Mouth ulceration [Recovering/Resolving]
  - Urine output decreased [Recovered/Resolved]
  - Respiratory tract infection [Recovering/Resolving]
  - Blood alkaline phosphatase increased [Not Recovered/Not Resolved]
  - Gamma-glutamyltransferase increased [Recovered/Resolved]
  - Bilirubin conjugated increased [Recovered/Resolved]
  - Asthenia [Not Recovered/Not Resolved]
  - Alanine aminotransferase increased [Recovered/Resolved]
  - Aspartate aminotransferase increased [Recovered/Resolved]
  - Back pain [Not Recovered/Not Resolved]

NARRATIVE: CASE EVENT DATE: 20210628
